FAERS Safety Report 5678044-1 (Version None)
Quarter: 2008Q1

REPORT INFORMATION
  Report Type: 
  Country: None (occurrence: None)
  Receive Date: 20080312
  Receipt Date: 20080227
  Transmission Date: 20080703
  Serious: Yes (Death, Hospitalization)
  Sender: FDA-Public Use
  Company Number: THYM-1000602

PATIENT
  Age: 34 Year
  Sex: Male

DRUGS (5)
  1. THYMOGLOBULIN [Suspect]
     Indication: RENAL TRANSPLANT
     Dosage: 1.25 MG/KG, QD, INTRAVENOUS
     Route: 042
     Dates: start: 20080131, end: 20080201
  2. CELLCEPT [Concomitant]
  3. CORTICOSTEROID NOS (CORTICOSTEROID NOS) [Concomitant]
  4. NEORAL [Concomitant]
  5. FUROSEMIDE [Concomitant]

REACTIONS (8)
  - ANURIA [None]
  - ARRHYTHMIA [None]
  - C-REACTIVE PROTEIN INCREASED [None]
  - DIALYSIS [None]
  - HYPOXIA [None]
  - LEUKOCYTOSIS [None]
  - POLYURIA [None]
  - RESPIRATORY DISTRESS [None]
